FAERS Safety Report 5941199-5 (Version None)
Quarter: 2008Q4

REPORT INFORMATION
  Report Type: 
  Country: None (occurrence: None)
  Receive Date: 20081104
  Receipt Date: 20081023
  Transmission Date: 20090506
  Serious: Yes (Other)
  Sender: FDA-Public Use
  Company Number: CA-PFIZER INC-2008028171

PATIENT
  Age: 47 Year
  Sex: Male

DRUGS (2)
  1. DEPO-TESTOSTERONE [Suspect]
     Indication: OLFACTO GENITAL DYSPLASIA
     Dates: start: 19810101
  2. CALCIUM [Concomitant]

REACTIONS (5)
  - AGGRESSION [None]
  - GENERAL PHYSICAL HEALTH DETERIORATION [None]
  - IMPAIRED WORK ABILITY [None]
  - MENTAL DISORDER [None]
  - OSTEOPOROSIS [None]
